FAERS Safety Report 7007648-9 (Version None)
Quarter: 2010Q3

REPORT INFORMATION
  Report Type: 
  Country: None (occurrence: None)
  Receive Date: 20100922
  Receipt Date: 20100915
  Transmission Date: 20110219
  Serious: Yes (Hospitalization)
  Sender: FDA-Public Use
  Company Number: FR-PFIZER INC-2010117367

PATIENT
  Age: 80 Year
  Sex: Female

DRUGS (11)
  1. TAHOR [Suspect]
     Indication: HYPERCHOLESTEROLAEMIA
     Dosage: 20 MG, 1X/DAY
     Route: 048
     Dates: end: 20100808
  2. DOLIPRANE [Suspect]
     Indication: HYPERTHERMIA
     Dosage: 500 MG, 4DF
     Route: 048
     Dates: start: 20100807
  3. DOLIPRANE [Suspect]
     Dosage: 500 MG, 3DF
     Route: 048
     Dates: start: 20100808, end: 20100809
  4. PARACETAMOL [Suspect]
     Indication: HYPERTHERMIA
     Dosage: 1 G, 1X/DAY
     Route: 042
     Dates: start: 20100806, end: 20100807
  5. LASIX [Suspect]
     Dosage: 20 MG, 1X/DAY
     Route: 048
     Dates: end: 20100810
  6. PREVISCAN [Concomitant]
     Dosage: UNK
  7. KARDEGIC [Concomitant]
     Dosage: UNK
  8. SERESTA [Concomitant]
     Dosage: UNK
  9. BISOPROLOL FUMARATE [Concomitant]
     Dosage: UNK
  10. AMOXICILLIN [Concomitant]
     Dosage: UNK
  11. CLAVULANIC ACID [Concomitant]
     Dosage: UNK

REACTIONS (3)
  - CYTOLYTIC HEPATITIS [None]
  - RENAL FAILURE ACUTE [None]
  - RHABDOMYOLYSIS [None]
